FAERS Safety Report 7410966-3 (Version None)
Quarter: 2011Q2

REPORT INFORMATION
  Report Type: 
  Country: None (occurrence: None)
  Receive Date: 20110405
  Receipt Date: 20110324
  Transmission Date: 20111010
  Serious: Yes (Other)
  Sender: FDA-Public Use
  Company Number: GER/UKI/11/0017477

PATIENT
  Sex: Female

DRUGS (11)
  1. ALENDRONATE SODIUM [Suspect]
     Indication: STEROID THERAPY
     Dosage: 70 MG, 1 IN 1 WK, ORAL
     Route: 048
     Dates: start: 20100712, end: 20100728
  2. ALENDRONATE SODIUM [Suspect]
     Indication: POLYMYALGIA RHEUMATICA
     Dosage: 70 MG, 1 IN 1 WK, ORAL
     Route: 048
     Dates: start: 20100712, end: 20100728
  3. PIOGLITAZONE [Concomitant]
  4. STEROIDS (ALL OTHER THERAPEUTIC PRODUCTS) [Concomitant]
  5. CALCICHEW D3 (LEKOVIT CA) [Concomitant]
  6. VALSARTAN [Concomitant]
  7. LANSOPRAZOLE [Concomitant]
  8. ENALAPRIL MALEATE [Concomitant]
  9. PREDNISOLONE [Concomitant]
  10. ATORVASTATIN (ATORVASTATIN) [Concomitant]
  11. METFORMIN HCL [Concomitant]

REACTIONS (5)
  - PALPITATIONS [None]
  - DIZZINESS [None]
  - DYSPNOEA [None]
  - BACK PAIN [None]
  - CHEST DISCOMFORT [None]
